FAERS Safety Report 15661516 (Version 1)
Quarter: 2018Q4

REPORT INFORMATION
  Report Type: Report from Study
  Country: US (occurrence: US)
  Receive Date: 20181127
  Receipt Date: 20181127
  Transmission Date: 20190205
  Serious: Yes (Hospitalization, Other)
  Sender: FDA-Public Use
  Company Number: US-GILEAD-2018-0375823

PATIENT
  Age: 28 Year
  Sex: Male

DRUGS (3)
  1. AZTREONAM LYSINE [Suspect]
     Active Substance: AZTREONAM LYSINE
     Indication: CYSTIC FIBROSIS
     Dosage: 75 MG, TID FOR 28 DAYS- THEN OFF FOR 28 DAYS
     Route: 065
     Dates: start: 20160219, end: 201604
  2. DEXILANT [Concomitant]
     Active Substance: DEXLANSOPRAZOLE
     Dosage: 60 MG
     Dates: start: 201811
  3. VITAMIN D [ERGOCALCIFEROL] [Concomitant]
     Dosage: 1.25 MG
     Dates: start: 201805

REACTIONS (1)
  - Transplant [Recovering/Resolving]

NARRATIVE: CASE EVENT DATE: 20181003
